FAERS Safety Report 10047419 (Version 1)
Quarter: 2014Q1

REPORT INFORMATION
  Report Type: Spontaneous
  Country: DO (occurrence: DO)
  Receive Date: 20140331
  Receipt Date: 20140331
  Transmission Date: 20141002
  Serious: Yes (Other)
  Sender: FDA-Public Use
  Company Number: DO-JNJFOC-20140314363

PATIENT
  Age: 70 Year
  Sex: Male

DRUGS (7)
  1. XARELTO [Suspect]
     Indication: PRODUCT USED FOR UNKNOWN INDICATION
     Route: 048
  2. FLUIMICIL [Concomitant]
     Route: 065
  3. LIPITOR [Concomitant]
     Route: 065
  4. CILOSTAZOL [Concomitant]
     Route: 065
  5. AUGMENTIN [Concomitant]
     Route: 065
  6. PANTECTA [Concomitant]
     Route: 065
  7. FERRIC CARBOXYMALTOSE [Concomitant]
     Route: 065

REACTIONS (2)
  - Thrombosis [Unknown]
  - Haemorrhage [Unknown]
